FAERS Safety Report 9056081 (Version 3)
Quarter: 2013Q4

REPORT INFORMATION
  Report Type: Spontaneous
  Country: US (occurrence: US)
  Receive Date: 20130205
  Receipt Date: 20131028
  Transmission Date: 20140711
  Serious: Yes (Hospitalization, Other)
  Sender: FDA-Public Use
  Company Number: US-BAYER-2013-012151

PATIENT
  Age: 34 Year
  Sex: Female
  Weight: 80.73 kg

DRUGS (3)
  1. MIRENA [Suspect]
     Indication: CONTRACEPTION
     Dosage: 20 MCG/24HR, CONT
     Route: 015
     Dates: start: 20060908, end: 20120717
  2. MIRENA [Suspect]
     Indication: MENORRHAGIA
  3. LEXAPRO [Concomitant]

REACTIONS (11)
  - Post procedural haemorrhage [None]
  - Uterine perforation [None]
  - Post procedural discomfort [None]
  - Pregnancy with contraceptive device [None]
  - Drug ineffective [None]
  - Abdominal pain lower [None]
  - Genital haemorrhage [None]
  - Back pain [None]
  - Device difficult to use [None]
  - Injury [None]
  - Device misuse [None]
